FAERS Safety Report 8178122-1 (Version None)
Quarter: 2012Q1

REPORT INFORMATION
  Report Type: 
  Country: None (occurrence: None)
  Receive Date: 20120126
  Receipt Date: 20111110
  Transmission Date: 20120608
  Serious: Yes (Other)
  Sender: FDA-Public Use
  Company Number: PHEH2011US07387

PATIENT
  Age: 80 Year
  Sex: Female

DRUGS (2)
  1. AFINITOR [Suspect]
     Indication: RENAL CANCER
     Dosage: 10 MG, QD, ORAL : 10 MG, QOD, ORAL : 5 MG, QD, ORAL
     Route: 048
     Dates: end: 20111110
  2. AFINITOR [Suspect]
     Indication: MALIGNANT URINARY TRACT NEOPLASM
     Dosage: 10 MG, QD, ORAL : 10 MG, QOD, ORAL : 5 MG, QD, ORAL
     Route: 048
     Dates: end: 20111110

REACTIONS (10)
  - MOUTH ULCERATION [None]
  - PALPITATIONS [None]
  - NAUSEA [None]
  - DIARRHOEA [None]
  - BLOOD GLUCOSE INCREASED [None]
  - RHINORRHOEA [None]
  - COUGH [None]
  - DYSGEUSIA [None]
  - FATIGUE [None]
  - VOMITING [None]
